FAERS Safety Report 4617701-2 (Version None)
Quarter: 2005Q1

REPORT INFORMATION
  Report Type: 
  Country: None (occurrence: None)
  Receive Date: 20050322
  Receipt Date: 20050308
  Transmission Date: 20050727
  Serious: Yes (Disabling)
  Sender: FDA-Public Use
  Company Number: 2005_000013

PATIENT
  Age: 44 Year
  Sex: Male

DRUGS (7)
  1. DEPOCYT [Suspect]
     Indication: CSF TEST ABNORMAL
     Dosage: 50 MG; XL; INTRATHECAL
     Route: 037
     Dates: start: 20041119, end: 20041119
  2. ACYCLOVIR [Concomitant]
  3. METOCLOPRAMIDE [Concomitant]
  4. PREDNISOLONE [Concomitant]
  5. FLUCONAZOLE [Concomitant]
  6. LANSOPRAZOLE [Concomitant]
  7. INSULIN HUMAN [Concomitant]

REACTIONS (6)
  - CONDITION AGGRAVATED [None]
  - HEADACHE [None]
  - HYPOTONIA [None]
  - PARAPLEGIA [None]
  - PHOTOPHOBIA [None]
  - VOMITING [None]
